FAERS Safety Report 23346074 (Version 1)
Quarter: 2023Q4

REPORT INFORMATION
  Report Type: Spontaneous
  Country: US (occurrence: US)
  Receive Date: 20231228
  Receipt Date: 20231228
  Transmission Date: 20240109
  Serious: Yes (Other)
  Sender: FDA-Public Use
  Company Number: US-BAYER-2023A183019

PATIENT
  Age: 61 Year
  Sex: Male

DRUGS (1)
  1. JIVI [Suspect]
     Active Substance: DAMOCTOCOG ALFA PEGOL
     Dosage: EVERY 24-48 HOURS

REACTIONS (1)
  - Haemarthrosis [Recovered/Resolved]

NARRATIVE: CASE EVENT DATE: 20231206
